FAERS Safety Report 10340315 (Version 3)
Quarter: 2014Q3

REPORT INFORMATION
  Report Type: Spontaneous
  Country: IT (occurrence: IT)
  Receive Date: 20140724
  Receipt Date: 20140731
  Transmission Date: 20150326
  Serious: Yes (Hospitalization)
  Sender: FDA-Public Use
  Company Number: IT-009507513-1407ITA010396

PATIENT
  Age: 50 Year
  Sex: Female
  Weight: 85 kg

DRUGS (6)
  1. ARAVA [Concomitant]
     Active Substance: LEFLUNOMIDE
     Dosage: 20 MG, UNK
     Route: 048
     Dates: start: 20131015, end: 20140708
  2. FLEXEN (KETOPROFEN) [Concomitant]
     Dosage: 200 MG, UNK
     Route: 048
     Dates: start: 20131015, end: 20140708
  3. REMICADE [Suspect]
     Active Substance: INFLIXIMAB
     Indication: PSORIATIC ARTHROPATHY
     Dosage: 500 MG, CYCLICAL
     Route: 042
  4. DIBASE [Concomitant]
     Active Substance: CHOLECALCIFEROL
     Dosage: 2500/2.5, UNK
     Route: 048
     Dates: start: 20131015, end: 20140708
  5. TRIMETON [Suspect]
     Active Substance: CHLORPHENIRAMINE MALEATE
     Dosage: STRENGTH: 10MG/1ML, DOSE: 100MG CYCLIC
     Route: 042
  6. DEFLAN [Concomitant]
     Active Substance: DEFLAZACORT
     Dosage: 30 MG, UNK
     Route: 048
     Dates: start: 20131015, end: 20140708

REACTIONS (4)
  - Tremor [Recovered/Resolved]
  - Dry mouth [Recovered/Resolved]
  - Pain [Recovered/Resolved]
  - Pulse abnormal [Recovered/Resolved]

NARRATIVE: CASE EVENT DATE: 20140708
